FAERS Safety Report 9335239 (Version 1)
Quarter: 2013Q2

REPORT INFORMATION
  Report Type: Spontaneous
  Country: FR (occurrence: FR)
  Receive Date: 20130606
  Receipt Date: 20130606
  Transmission Date: 20140414
  Serious: Yes (Disabling)
  Sender: FDA-Public Use
  Company Number: FR-PFIZER INC-2013170101

PATIENT
  Age: 58 Year
  Sex: Male

DRUGS (3)
  1. CORDARONE [Suspect]
     Dosage: 400 MG, DAILY
     Route: 048
     Dates: start: 20121107, end: 20121120
  2. PRADAXA [Concomitant]
     Dosage: UNK
     Dates: start: 20121005, end: 20121210
  3. BISOPROLOL [Concomitant]
     Dosage: UNK
     Dates: start: 20121005, end: 20121107

REACTIONS (1)
  - Axonal neuropathy [Recovering/Resolving]
